FAERS Safety Report 14297398 (Version 3)
Quarter: 2018Q1

REPORT INFORMATION
  Report Type: Report from Study
  Country: GB (occurrence: GB)
  Receive Date: 20171218
  Receipt Date: 20180307
  Transmission Date: 20180509
  Serious: Yes (Other)
  Sender: FDA-Public Use
  Company Number: GB-JNJFOC-20171220224

PATIENT
  Sex: Female

DRUGS (7)
  1. STELARA [Suspect]
     Active Substance: USTEKINUMAB
     Indication: PSORIASIS
     Route: 058
     Dates: start: 20170815
  2. ATORVASTATIN [Concomitant]
     Active Substance: ATORVASTATIN
     Dosage: 56 TABLETS ISSUE DATE: 02-JAN-2018 AND NEXT ISSUE DATE: 28-FEB-2018
     Route: 065
  3. DIPROSALIC [Concomitant]
     Active Substance: BETAMETHASONE DIPROPIONATE
     Dosage: ONCE OR TWICE A DAY. ISSUE DATE: 04-SEP-2017 AND NEXT ISSUE DATE WAS 03-OCT-2017
     Route: 065
  4. EUCERIN [Concomitant]
     Active Substance: ENSULIZOLE\EUCERIN\OCTINOXATE\OCTISALATE\TITANIUM DIOXIDE\ZINC OXIDE
     Dosage: TWICE A DAY, 200 ML. ISSUE DATE: 04-SEP-2017 AND NEXT ISSUE DATE WAS 03-OCT-2017
     Route: 065
  5. DERMOL [Concomitant]
     Active Substance: BENZALKONIUM CHLORIDE\CHLORHEXIDINE HYDROCHLORIDE\ISOPROPYL MYRISTATE\PARAFFIN
     Dosage: ADD 15 ML- 30ML TO BATH WATER, 600 ML ISSUE DATE: 02-JAN-2018 AND NEXT ISSUE DATE WAS 31-JAN-2018
     Route: 065
  6. HYDROMOL [Concomitant]
     Dosage: ISSUE DATE: 02-JAN-2018 AND NEXT ISSUE DATE WAS 31-JAN-2018
     Route: 065
  7. AMLODIPINE [Concomitant]
     Active Substance: AMLODIPINE BESYLATE
     Dosage: 56 TABLETS. LAST ISSUE DATE 02-JAN-2018
     Route: 065

REACTIONS (2)
  - Abdominal pain upper [Unknown]
  - Lower respiratory tract infection [Recovered/Resolved]
